FAERS Safety Report 6140506-0 (Version None)
Quarter: 2009Q1

REPORT INFORMATION
  Report Type: 
  Country: None (occurrence: None)
  Receive Date: 20090331
  Receipt Date: 20090324
  Transmission Date: 20090719
  Serious: No
  Sender: FDA-Public Use
  Company Number: 223594

PATIENT
  Age: 66 Year
  Sex: Male
  Weight: 71.6683 kg

DRUGS (2)
  1. CARBOPLATIN [Suspect]
     Indication: NEOPLASM MALIGNANT
     Dosage: 150 MG, CONTINOUS, INTRAVENOUS
     Route: 042
     Dates: start: 20090320, end: 20090320
  2. CARBOPLATIN [Suspect]
     Indication: NEOPLASM MALIGNANT
     Dosage: 50 MG, CONTINUOUS, INTRAVENOUS
     Route: 042
     Dates: start: 20090320, end: 20090320

REACTIONS (2)
  - DRUG HYPERSENSITIVITY [None]
  - RESPIRATORY DISTRESS [None]
